FAERS Safety Report 8385875-6 (Version None)
Quarter: 2012Q2

REPORT INFORMATION
  Report Type: 
  Country: None (occurrence: None)
  Receive Date: 20120525
  Receipt Date: 20120517
  Transmission Date: 20120825
  Serious: Yes (Disabling)
  Sender: FDA-Public Use
  Company Number: GB-US-EMD SERONO, INC.-7069562

PATIENT
  Age: 42 Year
  Sex: Female
  Weight: 76 kg

DRUGS (1)
  1. REBIF [Suspect]
     Indication: MULTIPLE SCLEROSIS
     Route: 058
     Dates: start: 20110201, end: 20110701

REACTIONS (2)
  - NECROSIS [None]
  - INJECTION SITE ABSCESS [None]
